FAERS Safety Report 9859910 (Version 2)
Quarter: 2014Q1

REPORT INFORMATION
  Report Type: Spontaneous
  Country: JP (occurrence: JP)
  Receive Date: 20140131
  Receipt Date: 20140327
  Transmission Date: 20141002
  Serious: Yes (Death, Other)
  Sender: FDA-Public Use
  Company Number: JP-009507513-1401JPN014597

PATIENT
  Age: 4 Year
  Sex: Male
  Weight: 18.6 kg

DRUGS (45)
  1. DECADRON PHOSPHATE INJECTION [Suspect]
     Indication: CHEMOTHERAPY MULTIPLE AGENTS SYSTEMIC
     Dosage: 0.25 MG, TID
     Route: 042
     Dates: start: 20131222, end: 20131222
  2. DECADRON PHOSPHATE INJECTION [Suspect]
     Indication: ACUTE LYMPHOCYTIC LEUKAEMIA
     Dosage: 2 MG, TID
     Route: 042
     Dates: start: 20131203, end: 20131216
  3. DECADRON PHOSPHATE INJECTION [Suspect]
     Dosage: 1 MG, TID
     Route: 042
     Dates: start: 20131217, end: 20131219
  4. DECADRON PHOSPHATE INJECTION [Suspect]
     Dosage: 0.5 MG, TID
     Route: 042
     Dates: start: 20131220, end: 20131221
  5. THERARUBICIN [Suspect]
     Indication: CHEMOTHERAPY MULTIPLE AGENTS SYSTEMIC
     Dosage: 18 MG, QD
     Route: 041
     Dates: start: 20131203, end: 20131203
  6. THERARUBICIN [Suspect]
     Indication: ACUTE LYMPHOCYTIC LEUKAEMIA
     Dosage: 18 MG, QD
     Route: 041
     Dates: start: 20131210, end: 20131210
  7. ONCOVIN [Suspect]
     Indication: CHEMOTHERAPY MULTIPLE AGENTS SYSTEMIC
     Dosage: DAILY DOSAGE UNKNOWN
     Route: 051
     Dates: start: 20130527
  8. ONCOVIN [Suspect]
     Indication: ACUTE LYMPHOCYTIC LEUKAEMIA
     Dosage: 1.1 MG, QD
     Route: 042
     Dates: start: 20131203, end: 20131203
  9. ONCOVIN [Suspect]
     Dosage: 1.1 MG, QD
     Route: 042
     Dates: start: 20131210, end: 20131210
  10. LEUNASE [Suspect]
     Indication: CHEMOTHERAPY MULTIPLE AGENTS SYSTEMIC
     Dosage: DAILY DOSAGE UNKNOWN
     Route: 051
     Dates: start: 20130527
  11. LEUNASE [Suspect]
     Indication: ACUTE LYMPHOCYTIC LEUKAEMIA
     Dosage: TOTAL DAILY DOSE: 7300 (UNDER 1000 UNIT) DAILY; DIVIDED DOSE AMOUNT UNKNOWN
     Route: 030
     Dates: start: 20131203, end: 20131203
  12. LEUNASE [Suspect]
     Dosage: TOTAL DAILY DOSE: 7300 (UNDER 1000 UNIT) DAILY; DIVIDED DOSE AMOUNT UNKNOWN
     Route: 030
     Dates: start: 20131206, end: 20131206
  13. LEUNASE [Suspect]
     Dosage: TOTAL DAILY DOSE: 7300 (UNDER 1000 UNIT) DAILY; DIVIDED DOSE AMOUNT UNKNOWN
     Route: 030
     Dates: start: 20131210, end: 20131210
  14. LEUNASE [Suspect]
     Dosage: TOTAL DAILY DOSE: 7300 (UNDER 1000 UNIT) DAILY; DIVIDED DOSE AMOUNT UNKNOWN
     Route: 030
     Dates: start: 20131213, end: 20131213
  15. ENDOXAN [Suspect]
     Indication: CHEMOTHERAPY MULTIPLE AGENTS SYSTEMIC
     Dosage: TOTAL DAILY DOSE 370 MG; DIVIDED DOSE FREQUENCY UNKNOWN
     Route: 041
     Dates: start: 20130718
  16. ENDOXAN [Suspect]
     Indication: ACUTE LYMPHOCYTIC LEUKAEMIA
     Dosage: 370 MG, QD
     Route: 041
     Dates: start: 20131217, end: 20131217
  17. CYLOCIDE [Suspect]
     Indication: CHEMOTHERAPY MULTIPLE AGENTS SYSTEMIC
     Dosage: DAILY DOSE UNKNOWN
     Route: 051
     Dates: start: 20130527
  18. CYLOCIDE [Suspect]
     Indication: ACUTE LYMPHOCYTIC LEUKAEMIA
     Dosage: DAILY DOSE UNKNOWN
     Route: 051
     Dates: start: 20130718
  19. CYLOCIDE [Suspect]
     Dosage: DAILY DOSE UNKNOWN
     Route: 051
     Dates: start: 20130923
  20. CYLOCIDE [Suspect]
     Dosage: 55 MG, QD
     Route: 041
     Dates: start: 20131219, end: 20131219
  21. CYLOCIDE [Suspect]
     Dosage: TOTAL DAILY DOSE: 30 MG; DIVIDED DOSE AMOUNT UNKNOWN
     Route: 028
     Dates: start: 20131203, end: 20131203
  22. CYLOCIDE [Suspect]
     Dosage: TOTAL DAILY DOSE: 30 MG; DIVIDED DOSE AMOUNT UNKNOWN
     Route: 028
     Dates: start: 20131219, end: 20131219
  23. LEUKERIN [Suspect]
     Indication: CHEMOTHERAPY MULTIPLE AGENTS SYSTEMIC
     Dosage: DAILY DOSE UNKNOWN
     Route: 048
     Dates: start: 20130718
  24. LEUKERIN [Suspect]
     Indication: ACUTE LYMPHOCYTIC LEUKAEMIA
     Dosage: DAILY DOSE UNKNOWN
     Route: 048
     Dates: start: 20130923
  25. LEUKERIN [Suspect]
     Dosage: 44 MG, QD
     Route: 048
     Dates: start: 20131217, end: 20131219
  26. METHOTREXATE [Suspect]
     Indication: CHEMOTHERAPY MULTIPLE AGENTS SYSTEMIC
     Dosage: DAILY DOSAGE UNKNOWN
     Route: 051
     Dates: start: 20130527
  27. METHOTREXATE [Suspect]
     Indication: ACUTE LYMPHOCYTIC LEUKAEMIA
     Dosage: DAILY DOSAGE UNKNOWN
     Route: 051
     Dates: start: 20130718
  28. METHOTREXATE [Suspect]
     Dosage: DAILY DOSAGE UNKNOWN
     Route: 051
     Dates: start: 20130923
  29. METHOTREXATE [Suspect]
     Dosage: TOTAL DAILY DOSE: 12 MG; DIVIDED DOSE AMOUNT UNKNOWN
     Route: 028
     Dates: start: 20131203, end: 20131203
  30. METHOTREXATE [Suspect]
     Dosage: TOTAL DAILY DOSE: 12 MG; DIVIDED DOSE AMOUNT UNKNOWN
     Route: 028
     Dates: start: 20131219, end: 20131219
  31. PREDONINE [Suspect]
     Indication: CHEMOTHERAPY MULTIPLE AGENTS SYSTEMIC
     Dosage: DAILY DOSAGE UNKNOWN
     Route: 051
     Dates: start: 20130718
  32. PREDONINE [Suspect]
     Indication: ACUTE LYMPHOCYTIC LEUKAEMIA
     Dosage: DAILY DOSAGE UNKNOWN
     Route: 051
     Dates: start: 20130923
  33. PREDONINE [Suspect]
     Dosage: TOTAL DAILY DOSE: 10 MG; DIVIDED DOSE AMOUNT UNKNOWN
     Route: 028
     Dates: start: 20131203, end: 20131203
  34. PREDONINE [Suspect]
     Dosage: TOTAL DAILY DOSE: 10 MG; DIVIDED DOSE AMOUNT UNKNOWN
     Route: 028
     Dates: start: 20131219, end: 20131219
  35. PREDNISOLONE ACETATE [Concomitant]
     Indication: CHEMOTHERAPY MULTIPLE AGENTS SYSTEMIC
     Dosage: DAILY DOSAGE UNKNOWN
     Route: 051
     Dates: start: 20130527
  36. PREDNISOLONE ACETATE [Concomitant]
     Indication: ACUTE LYMPHOCYTIC LEUKAEMIA
  37. BAKTAR [Concomitant]
     Dosage: DAILY DOSAGE UNKNOWN
     Route: 048
  38. FLUCONAZOLE [Concomitant]
     Dosage: DAILY DOSAGE UNKNOWN
     Route: 065
  39. ZOSYN [Concomitant]
     Dosage: DAILY DOSAGE UNKNOWN
     Route: 042
  40. MEROPEN [Concomitant]
     Dosage: DAILY DOSAGE UNKNOWN
     Route: 041
  41. FAMOTIDINE [Concomitant]
     Dosage: DAILY DOSAGE UNKNWON
     Route: 065
  42. ONDANSETRON HYDROCHLORIDE [Concomitant]
     Dosage: DAILY DOSE UNKNOWN
     Route: 065
  43. NICARDIPINE HYDROCHLORIDE [Concomitant]
     Dosage: DAILY DOSAGE UNKNOWN
     Route: 065
  44. URSO [Concomitant]
     Dosage: DAILY DOSAGE UNKNOWN
     Route: 048
  45. NEO-MINOPHAGEN C [Concomitant]
     Dosage: DAILY DOSAGE UNKNOWN
     Route: 042

REACTIONS (8)
  - Hepatic failure [Fatal]
  - Melaena [Fatal]
  - Bone marrow failure [Unknown]
  - Hepatic function abnormal [Unknown]
  - Blood pressure increased [Unknown]
  - Convulsion [Unknown]
  - Posterior reversible encephalopathy syndrome [Unknown]
  - Tracheal haemorrhage [Fatal]
